FAERS Safety Report 24683833 (Version 1)
Quarter: 2024Q4

REPORT INFORMATION
  Report Type: Spontaneous
  Country: AE (occurrence: AE)
  Receive Date: 20241202
  Receipt Date: 20241202
  Transmission Date: 20250115
  Serious: Yes (Hospitalization)
  Sender: HETERO
  Company Number: AE-AMAROX PHARMA-HET2024AE04382

PATIENT
  Age: 44 Year
  Sex: Male

DRUGS (8)
  1. ARIPIPRAZOLE [Interacting]
     Active Substance: ARIPIPRAZOLE
     Indication: Schizophrenia
     Dosage: 10 MILLIGRAM, BID
     Route: 048
  2. ARIPIPRAZOLE [Interacting]
     Active Substance: ARIPIPRAZOLE
     Dosage: 20 MILLIGRAM, QD
     Route: 048
  3. ARIPIPRAZOLE [Interacting]
     Active Substance: ARIPIPRAZOLE
     Dosage: 30 MILLIGRAM, QD
     Route: 048
  4. ARIPIPRAZOLE [Interacting]
     Active Substance: ARIPIPRAZOLE
     Dosage: 400 MILLIGRAM
     Route: 030
  5. HALOPERIDOL [Interacting]
     Active Substance: HALOPERIDOL
     Indication: Aggression
     Dosage: 10 MILLIGRAM, Q.H.S.
     Route: 065
  6. HALOPERIDOL [Interacting]
     Active Substance: HALOPERIDOL
     Dosage: 15 MILLIGRAM, BID
     Route: 065
  7. HALOPERIDOL [Interacting]
     Active Substance: HALOPERIDOL
     Dosage: TAPERED 10 MILLIGRAM
     Route: 065
  8. OLANZAPINE [Concomitant]
     Active Substance: OLANZAPINE
     Indication: Product used for unknown indication
     Dosage: 10 MILLIGRAM, ONCE DAILY (OD) (AT BEDTIME
     Route: 065

REACTIONS (5)
  - Drug interaction [Unknown]
  - Psychotic symptom [Recovered/Resolved]
  - Condition aggravated [Recovered/Resolved]
  - Treatment noncompliance [Unknown]
  - Drug ineffective [Unknown]
